FAERS Safety Report 4747747-5 (Version None)
Quarter: 2005Q3

REPORT INFORMATION
  Report Type: 
  Country: None (occurrence: None)
  Receive Date: 20050816
  Receipt Date: 20050726
  Transmission Date: 20060218
  Serious: Yes (Hospitalization)
  Sender: FDA-Public Use
  Company Number: 02100-USA-03-0547

PATIENT
  Age: 76 Year
  Sex: Female

DRUGS (11)
  1. PLETAL [Suspect]
     Indication: INTERMITTENT CLAUDICATION
     Dosage: 100 MG BID ORAL
     Route: 048
     Dates: start: 20020114, end: 20030816
  2. PLETAL [Suspect]
     Indication: INTERMITTENT CLAUDICATION
     Dosage: 100 MG BID ORAL
     Route: 048
     Dates: start: 20030819, end: 20030826
  3. METOPROLOL [Concomitant]
  4. HYDROCHLOROTHIAZIDE [Concomitant]
  5. LIPITOR [Concomitant]
  6. COUMADIN [Concomitant]
  7. COMBIVENT [Concomitant]
  8. VITAMIN B COMPLEX CAP [Concomitant]
  9. BEXTRA [Concomitant]
  10. PLETAL [Suspect]
     Indication: INTERMITTENT CLAUDICATION
     Dosage: 50 MG BID ORAL
     Route: 048
     Dates: start: 20020114, end: 20030816
  11. PLETAL [Suspect]
     Indication: INTERMITTENT CLAUDICATION
     Dosage: 50 MG BID ORAL
     Route: 048
     Dates: start: 20030819, end: 20030826

REACTIONS (8)
  - ABDOMINAL PAIN [None]
  - BLOOD PRESSURE DECREASED [None]
  - GASTROINTESTINAL HAEMORRHAGE [None]
  - HAEMATOCRIT DECREASED [None]
  - HAEMOGLOBIN DECREASED [None]
  - LETHARGY [None]
  - MOUTH ULCERATION [None]
  - RESPIRATORY RATE INCREASED [None]
